FAERS Safety Report 5753130-6 (Version None)
Quarter: 2008Q2

REPORT INFORMATION
  Report Type: 
  Country: None (occurrence: None)
  Receive Date: 20080527
  Receipt Date: 20080509
  Transmission Date: 20081010
  Serious: No
  Sender: FDA-Public Use
  Company Number: TPH-00032

PATIENT
  Age: 26 Year
  Sex: Female

DRUGS (4)
  1. TRIQUILAR [Suspect]
     Indication: DRUG USE FOR UNKNOWN INDICATION
     Dosage: 1 DF ORAL
     Route: 048
     Dates: start: 20070312, end: 20071028
  2. PROGESTERONE [Concomitant]
  3. SYNPHASE T28 [Concomitant]
  4. TRIDIOL 28 [Concomitant]

REACTIONS (1)
  - ENDOMETRIAL HYPERPLASIA [None]
